FAERS Safety Report 4890658-5 (Version None)
Quarter: 2006Q1

REPORT INFORMATION
  Report Type: 
  Country: None (occurrence: None)
  Receive Date: 20060123
  Receipt Date: 20060111
  Transmission Date: 20060701
  Serious: Yes (Other)
  Sender: FDA-Public Use
  Company Number: 2006005856

PATIENT
  Age: 16 Year
  Sex: Female
  Weight: 58.9676 kg

DRUGS (1)
  1. SUDAFED 12 HOUR [Suspect]
     Dosage: 24 TABS ONCE, ORAL
     Route: 048
     Dates: start: 20060110, end: 20060110

REACTIONS (3)
  - HOT FLUSH [None]
  - HYPERHIDROSIS [None]
  - VOMITING [None]
